FAERS Safety Report 8485801-5 (Version None)
Quarter: 2012Q3

REPORT INFORMATION
  Report Type: 
  Country: None (occurrence: None)
  Receive Date: 20120703
  Receipt Date: 20120629
  Transmission Date: 20120928
  Serious: No
  Sender: FDA-Public Use
  Company Number: US-PFIZER INC-2012157435

PATIENT
  Sex: Female

DRUGS (1)
  1. ZOLOFT [Suspect]
     Dosage: UNK

REACTIONS (4)
  - SWELLING [None]
  - PRURITUS [None]
  - DRUG HYPERSENSITIVITY [None]
  - RASH [None]
